FAERS Safety Report 15782845 (Version 2)
Quarter: 2019Q1

REPORT INFORMATION
  Report Type: Report from Study
  Country: EG (occurrence: EG)
  Receive Date: 20190102
  Receipt Date: 20190107
  Transmission Date: 20190417
  Serious: Yes (Death)
  Sender: FDA-Public Use
  Company Number: EG-SA-2018SA241333

PATIENT
  Age: 72 Year
  Sex: Male

DRUGS (1)
  1. INSULIN GLARGINE [Suspect]
     Active Substance: INSULIN GLARGINE
     Indication: TYPE 2 DIABETES MELLITUS
     Dosage: 8 IU, QD
     Route: 058
     Dates: start: 20170613, end: 20180501

REACTIONS (3)
  - Renal failure [Fatal]
  - Cholelithiasis [Fatal]
  - Nephrolithiasis [Fatal]
